FAERS Safety Report 17244776 (Version 1)
Quarter: 2020Q1

REPORT INFORMATION
  Report Type: Spontaneous
  Country: NL (occurrence: NL)
  Receive Date: 20200107
  Receipt Date: 20200107
  Transmission Date: 20200409
  Serious: Yes (Hospitalization)
  Sender: FDA-Public Use
  Company Number: NL-TEVA-2020-NL-1163658

PATIENT
  Age: 49 Year
  Sex: Male
  Weight: 100 kg

DRUGS (6)
  1. OXAZEPAM. [Concomitant]
     Active Substance: OXAZEPAM
  2. DULOXETINE. [Concomitant]
     Active Substance: DULOXETINE
  3. AMOXICILLINE CAPSULE, 500 MG (MILLIGRAM) [Suspect]
     Active Substance: AMOXICILLIN
     Indication: SINUSITIS
     Dosage: 3DD1 (500 MG PER 8 HOURS)
     Dates: start: 201911
  4. PANTOPRAZOL [Concomitant]
     Active Substance: PANTOPRAZOLE SODIUM
  5. METMORFINE [Concomitant]
  6. LORMETAZAPINE [Concomitant]

REACTIONS (2)
  - Meningitis aseptic [Recovered/Resolved]
  - Headache [Recovered/Resolved]

NARRATIVE: CASE EVENT DATE: 201911
